FAERS Safety Report 13507667 (Version 1)
Quarter: 2017Q2

REPORT INFORMATION
  Report Type: Spontaneous
  Country: US (occurrence: US)
  Receive Date: 20170503
  Receipt Date: 20170503
  Transmission Date: 20170830
  Serious: Yes (Hospitalization, Disabling)
  Sender: FDA-Public Use
  Company Number: None

PATIENT
  Age: 53 Year
  Sex: Female
  Weight: 83.25 kg

DRUGS (5)
  1. LEVAQUIN [Suspect]
     Active Substance: LEVOFLOXACIN
     Indication: DIVERTICULITIS
     Dates: start: 20170322, end: 20170412
  2. TRAZODONE [Concomitant]
     Active Substance: TRAZODONE HYDROCHLORIDE
  3. MULTIVITAMIN [Concomitant]
     Active Substance: VITAMINS
  4. GABAPENTIN. [Concomitant]
     Active Substance: GABAPENTIN
  5. RIVATRIPTAN [Concomitant]

REACTIONS (4)
  - Drug ineffective [None]
  - Asthenia [None]
  - Pain in extremity [None]
  - Impaired work ability [None]

NARRATIVE: CASE EVENT DATE: 20170322
